FAERS Safety Report 11503256 (Version 1)
Quarter: 2015Q3

REPORT INFORMATION
  Report Type: Report from Study
  Country: KR (occurrence: KR)
  Receive Date: 20150914
  Receipt Date: 20150914
  Transmission Date: 20151125
  Serious: Yes (Hospitalization)
  Sender: FDA-Public Use
  Company Number: KR-EISAI MEDICAL RESEARCH-EC-2015-010281

PATIENT
  Age: 78 Year
  Sex: Female
  Weight: 47.25 kg

DRUGS (8)
  1. TRIFLUSAL [Concomitant]
     Active Substance: TRIFLUSAL
  2. LACTIC ACID. [Concomitant]
     Active Substance: LACTIC ACID
  3. TOCOPHEROL ACETATE [Concomitant]
     Active Substance: .ALPHA.-TOCOPHEROL ACETATE
  4. NIZATIDINE. [Concomitant]
     Active Substance: NIZATIDINE
  5. DONEPEZIL. [Suspect]
     Active Substance: DONEPEZIL
     Indication: DEMENTIA ALZHEIMER^S TYPE
     Route: 048
     Dates: start: 20150904, end: 20150904
  6. CHOLINE ALFOSCERATE [Concomitant]
     Active Substance: CHOLINE ALFOSCERATE
  7. STREPTOKINASE-STREPTODORNASE. [Concomitant]
     Active Substance: STREPTOKINASE-STREPTODORNASE
  8. LOXOPROFEN SODIUM [Concomitant]
     Active Substance: LOXOPROFEN SODIUM

REACTIONS (3)
  - Vomiting [Recovered/Resolved]
  - Chills [Recovered/Resolved]
  - Nausea [Recovered/Resolved]

NARRATIVE: CASE EVENT DATE: 20150904
